FAERS Safety Report 9984261 (Version 1)
Quarter: 2014Q1

REPORT INFORMATION
  Report Type: Report from Study
  Country: US (occurrence: US)
  Receive Date: 20140307
  Receipt Date: 20140307
  Transmission Date: 20141002
  Serious: No
  Sender: FDA-Public Use
  Company Number: US-ABBVIE-13P-163-1181410-00

PATIENT
  Age: 51 Year
  Sex: Female
  Weight: 60.84 kg

DRUGS (5)
  1. HUMIRA [Suspect]
     Indication: COLITIS ULCERATIVE
     Dates: start: 20131004, end: 20131004
  2. HUMIRA [Suspect]
     Dates: start: 20131018, end: 20131018
  3. HUMIRA [Suspect]
     Dates: start: 20131101
  4. VITAMINS [Concomitant]
     Indication: VITAMIN SUPPLEMENTATION
  5. NASONEX [Concomitant]
     Indication: HYPERSENSITIVITY

REACTIONS (2)
  - Rash [Not Recovered/Not Resolved]
  - Herpes zoster [Not Recovered/Not Resolved]
